FAERS Safety Report 26079884 (Version 1)
Quarter: 2025Q4

REPORT INFORMATION
  Report Type: Spontaneous
  Country: EU (occurrence: EU)
  Receive Date: 20251123
  Receipt Date: 20251123
  Transmission Date: 20260118
  Serious: Yes (Hospitalization)
  Sender: JOHNSON AND JOHNSON
  Company Number: None

PATIENT
  Age: 19 Year
  Sex: Male

DRUGS (4)
  1. RISPERDAL [Suspect]
     Active Substance: RISPERIDONE
     Indication: Schizophrenia
     Dosage: 2 MG X 1 ILTAAN / 2 MG IN THE EVENING
     Route: 048
     Dates: start: 20251114, end: 20251116
  2. ABILIFY MAINTENA [Concomitant]
     Active Substance: ARIPIPRAZOLE
     Indication: Schizophrenia
     Dosage: EVERY 4 WEEKS
     Route: 030
  3. QUETIAPINE FUMARATE [Concomitant]
     Active Substance: QUETIAPINE FUMARATE
     Indication: Sedative therapy
     Dosage: 1X1
     Route: 048
     Dates: end: 20251116
  4. QUETIAPINE FUMARATE [Concomitant]
     Active Substance: QUETIAPINE FUMARATE
     Indication: Sleep disorder

REACTIONS (5)
  - Muscle spasticity [Recovered/Resolved]
  - Tremor [Recovered/Resolved]
  - Oculogyric crisis [Recovered/Resolved]
  - Conversion disorder [Recovered/Resolved]
  - Dystonia [Recovered/Resolved]

NARRATIVE: CASE EVENT DATE: 20251116
